FAERS Safety Report 6635047-8 (Version None)
Quarter: 2010Q1

REPORT INFORMATION
  Report Type: 
  Country: None (occurrence: None)
  Receive Date: 20100315
  Receipt Date: 20100301
  Transmission Date: 20100710
  Serious: Yes (Hospitalization)
  Sender: FDA-Public Use
  Company Number: US-MYLANLABS-2010S1003301

PATIENT
  Sex: Female

DRUGS (5)
  1. BACLOFEN [Suspect]
     Indication: CEREBRAL PALSY
     Dosage: VIA PUMP
     Route: 037
  2. BACLOFEN [Suspect]
     Dosage: VIA PUMP
     Route: 037
  3. DIAZEPAM [Concomitant]
     Route: 048
  4. DANTROLENE [Concomitant]
     Route: 048
  5. PROCET                             /01554201/ [Concomitant]
     Indication: PAIN
     Dosage: 0.5 TO 1 TABLET EVERY EVENING
     Route: 048

REACTIONS (2)
  - DRUG EXPOSURE DURING PREGNANCY [None]
  - RESPIRATORY DISTRESS [None]
